FAERS Safety Report 5310557-4 (Version None)
Quarter: 2007Q1

REPORT INFORMATION
  Report Type: 
  Country: None (occurrence: None)
  Receive Date: 20070201
  Receipt Date: 20061012
  Transmission Date: 20070707
  Serious: No
  Sender: FDA-Public Use
  Company Number: 258039

PATIENT
  Age: 59 Year
  Sex: Male
  Weight: 68 kg

DRUGS (7)
  1. LEVEMIR [Suspect]
     Indication: INSULIN-REQUIRING TYPE II DIABETES MELLITUS
     Dosage: SLIDING SCALE, SUBCUTANEOUS
     Route: 058
     Dates: start: 20060401
  2. ACTOS [Concomitant]
  3. AVAPRO [Concomitant]
  4. STARLIX [Concomitant]
  5. ZETIA [Concomitant]
  6. MULTIVITAMIN [Concomitant]
  7. NIASPAN [Concomitant]

REACTIONS (1)
  - HYPERSENSITIVITY [None]
